FAERS Safety Report 7412501-2 (Version None)
Quarter: 2011Q2

REPORT INFORMATION
  Report Type: 
  Country: None (occurrence: None)
  Receive Date: 20110405
  Receipt Date: 20110317
  Transmission Date: 20111010
  Serious: Yes (Death)
  Sender: FDA-Public Use
  Company Number: 2011P1005358

PATIENT
  Age: 34 Year
  Sex: Male

DRUGS (3)
  1. ALPRAZOLAM [Suspect]
  2. OPIOID (NO PREF. NAME) [Suspect]
  3. ACETAMINOPHEN/OPIOID (NO PREF. NAME) [Suspect]

REACTIONS (2)
  - INCORRECT ROUTE OF DRUG ADMINISTRATION [None]
  - DRUG ABUSE [None]
